FAERS Safety Report 19645584 (Version 1)
Quarter: 2021Q3

REPORT INFORMATION
  Report Type: Spontaneous
  Country: US (occurrence: US)
  Receive Date: 20210730
  Receipt Date: 20210730
  Transmission Date: 20211014
  Serious: Yes (Hospitalization)
  Sender: FDA-Public Use
  Company Number: None

PATIENT
  Age: 69 Year
  Sex: Female
  Weight: 81.9 kg

DRUGS (8)
  1. ALENDRONATE 10MG [Concomitant]
     Active Substance: ALENDRONATE SODIUM
  2. SIMVASTATIN 5MG [Concomitant]
  3. LEVOTHYROXINE 100MCG [Concomitant]
     Active Substance: LEVOTHYROXINE
  4. CLONAZEPAM 0.5MG [Concomitant]
     Active Substance: CLONAZEPAM
  5. REMERON 15MG [Concomitant]
  6. CAPECITABINE. [Suspect]
     Active Substance: CAPECITABINE
     Indication: BREAST CANCER
     Dosage: ?          OTHER FREQUENCY:BID X 14/21 DAYS;?
     Route: 048
     Dates: start: 20210128
  7. XARELTO [Concomitant]
     Active Substance: RIVAROXABAN
  8. LEXAPRO [Concomitant]
     Active Substance: ESCITALOPRAM OXALATE

REACTIONS (1)
  - Thrombosis [None]

NARRATIVE: CASE EVENT DATE: 20210730
